FAERS Safety Report 23897777 (Version 1)
Quarter: 2024Q2

REPORT INFORMATION
  Report Type: Spontaneous
  Country: FI (occurrence: FI)
  Receive Date: 20240524
  Receipt Date: 20240524
  Transmission Date: 20240716
  Serious: Yes (Hospitalization)
  Sender: FDA-Public Use
  Company Number: FI-DSJP-DSE-2024-118868

PATIENT
  Age: 84 Year
  Sex: Female

DRUGS (8)
  1. EDOXABAN [Suspect]
     Active Substance: EDOXABAN
     Indication: Product used for unknown indication
     Dosage: 30 MG, QD (X 1)
     Route: 065
  2. FUROSEMIDE [Suspect]
     Active Substance: FUROSEMIDE
     Indication: Product used for unknown indication
     Dosage: 40 MG (2 + 2)
     Route: 065
  3. LOSARTAN [Suspect]
     Active Substance: LOSARTAN
     Indication: Product used for unknown indication
     Dosage: 12.5 MG, QD (X 1)
     Route: 065
  4. DIGOXIN [Suspect]
     Active Substance: DIGOXIN
     Indication: Product used for unknown indication
     Dosage: 0.06 MG, QD (X 1)
     Route: 065
  5. ALLOPURINOL [Suspect]
     Active Substance: ALLOPURINOL
     Indication: Product used for unknown indication
     Dosage: 100 MG, BID (X 2)
     Route: 065
  6. METFORMIN [Suspect]
     Active Substance: METFORMIN HYDROCHLORIDE
     Indication: Product used for unknown indication
     Dosage: 500 MG, BID (X 2 )
     Route: 065
  7. BISOPROLOL [Suspect]
     Active Substance: BISOPROLOL\BISOPROLOL FUMARATE
     Indication: Product used for unknown indication
     Dosage: 5 MG (2+2)
     Route: 065
  8. TAFLUPROST [Suspect]
     Active Substance: TAFLUPROST
     Indication: Product used for unknown indication
     Dosage: 15 MICROG/ML, 1 DROP IN THE LEFT EYE IN THE EVENING
     Route: 065

REACTIONS (7)
  - Stasis dermatitis [Unknown]
  - Syncope [Unknown]
  - Head discomfort [Unknown]
  - Syncope [Unknown]
  - Tinnitus [Unknown]
  - Intraocular pressure increased [Recovered/Resolved]
  - Sinus node dysfunction [Recovered/Resolved]
